FAERS Safety Report 4402784-5 (Version None)
Quarter: 2004Q3

REPORT INFORMATION
  Report Type: 
  Country: None (occurrence: None)
  Receive Date: 20040721
  Receipt Date: 20030630
  Transmission Date: 20050211
  Serious: No
  Sender: FDA-Public Use
  Company Number: US-BRISTOL-MYERS SQUIBB COMPANY-12314399

PATIENT
  Age: 43 Year
  Sex: Male
  Weight: 68 kg

DRUGS (10)
  1. ZERIT [Suspect]
     Indication: ACQUIRED IMMUNODEFICIENCY SYNDROME
     Dosage: DOSAGE TAKEN IN THE MORNING AND AT NIGHT.
     Route: 048
     Dates: start: 20010801
  2. DIFLUCAN [Concomitant]
  3. DAPSONE [Concomitant]
     Dosage: DISCONTINUED 1 MONTH PRIOR TO REPORTING.
  4. LORAZEPAM [Concomitant]
  5. FLONASE [Concomitant]
  6. IBUPROFEN [Concomitant]
  7. AZITHROMYCIN [Concomitant]
     Dosage: DISCONTINUED APPROXIMATELY 1 MONTH PRIOR TO REPORTING.
  8. NEXIUM [Concomitant]
  9. MULTI-VITAMINS [Concomitant]
  10. TYLENOL [Concomitant]

REACTIONS (3)
  - FATIGUE [None]
  - HEADACHE [None]
  - HYPERSOMNIA [None]
